FAERS Safety Report 5122762-0 (Version None)
Quarter: 2006Q4

REPORT INFORMATION
  Report Type: 
  Country: None (occurrence: None)
  Receive Date: 20061009
  Receipt Date: 20060915
  Transmission Date: 20070319
  Serious: Yes (Death)
  Sender: FDA-Public Use
  Company Number: PHEH2006US11824

PATIENT
  Age: 58 Year
  Sex: Female
  Weight: 74.829 kg

DRUGS (12)
  1. ZELNORM [Suspect]
     Indication: DIVERTICULUM
     Dosage: 6 MG, QD
     Route: 048
     Dates: start: 20060802
  2. ATENOLOL [Concomitant]
     Dosage: 100 MG, QD
     Route: 048
     Dates: start: 20040101
  3. AVAPRO [Concomitant]
     Dosage: 300 MG, QD
     Route: 048
     Dates: start: 20040101
  4. COLCHICINE [Concomitant]
     Dosage: 0.6 MG, BID
     Route: 048
     Dates: start: 20040101
  5. HYDROCHLOROTHIAZDE TAB [Concomitant]
     Dosage: 50 MG, QD
     Route: 048
     Dates: start: 20040101
  6. LASIX [Concomitant]
     Dosage: 40 MG, QD
     Route: 048
     Dates: start: 20040101
  7. MINOXIDIL [Concomitant]
     Dosage: 10 MG, QD
     Route: 048
  8. NEXIUM [Concomitant]
     Dosage: 40 MG, QD
     Route: 048
  9. NIFEDIPINE [Concomitant]
     Dosage: 90 MG, QD
     Route: 048
  10. PHOSLO [Concomitant]
     Route: 048
  11. RENALTABS [Concomitant]
     Dosage: UNK, QD
     Route: 048
  12. SENSIPAR [Concomitant]
     Dosage: 1/2 30 MG, QD
     Route: 048

REACTIONS (2)
  - HYPERTENSION [None]
  - RENAL FAILURE CHRONIC [None]
